FAERS Safety Report 6234630-1 (Version None)
Quarter: 2009Q2

REPORT INFORMATION
  Report Type: 
  Country: None (occurrence: None)
  Receive Date: 20090615
  Receipt Date: 20090409
  Transmission Date: 20091009
  Serious: No
  Sender: FDA-Public Use
  Company Number: DSA_33497_2009

PATIENT
  Sex: Female
  Weight: 53.978 kg

DRUGS (2)
  1. XENAZINE [Suspect]
     Indication: TARDIVE DYSKINESIA
     Dosage: 12.5 MG TID
     Dates: start: 20090301
  2. FORADIL INHALER [Concomitant]

REACTIONS (1)
  - WEIGHT DECREASED [None]
